FAERS Safety Report 7826840-4 (Version None)
Quarter: 2011Q4

REPORT INFORMATION
  Report Type: 
  Country: None (occurrence: None)
  Receive Date: 20111020
  Receipt Date: 20111011
  Transmission Date: 20120403
  Serious: Yes (Other)
  Sender: FDA-Public Use
  Company Number: CA-US-EMD SERONO, INC.-7028542

PATIENT
  Sex: Female
  Weight: 65 kg

DRUGS (29)
  1. REBIF [Suspect]
     Indication: MULTIPLE SCLEROSIS
     Dates: start: 20091008
  2. SANDOZ-SENNOSIDEL (SENNOSIDE A+B) [Concomitant]
  3. CYMBALTA [Concomitant]
  4. RABAPROSOL [Concomitant]
  5. ACTONEL [Concomitant]
  6. COZAR (COZAAR) [Concomitant]
  7. CALCIUM CARBONATE [Concomitant]
  8. FLOVENT [Concomitant]
  9. NEUCONIN (NEURONTIN) [Concomitant]
  10. PANTOPRAZOLE SODIUM [Concomitant]
  11. PHEMAVIN [Concomitant]
     Indication: MENOPAUSE
  12. PRO AAS CHEWABLE (ASA) [Concomitant]
  13. HYZAAR [Concomitant]
  14. PRO LORAZEPAM [Concomitant]
  15. ELAVIL [Concomitant]
  16. NAPROX [Concomitant]
  17. VENTOLIN [Concomitant]
  18. CESAMET [Concomitant]
  19. CALCIUM WITH VIT 3 [Concomitant]
  20. SPIRIVA [Concomitant]
  21. LIPITOR [Concomitant]
  22. SENOKOT [Concomitant]
  23. TYLENOL-500 [Concomitant]
  24. ESTRACE [Concomitant]
  25. FLEXERIL [Concomitant]
  26. PMS NYSTATIN [Concomitant]
  27. MIRAPEX [Concomitant]
  28. SENTANYL [Concomitant]
  29. JAMP SULPHATE FERROUS [Concomitant]

REACTIONS (23)
  - ULCER [None]
  - ANGIOPLASTY [None]
  - GAMMA-GLUTAMYLTRANSFERASE INCREASED [None]
  - INJECTION SITE ERYTHEMA [None]
  - ALANINE AMINOTRANSFERASE INCREASED [None]
  - ASTHENIA [None]
  - BONE DISORDER [None]
  - POST PROCEDURAL HAEMATOMA [None]
  - OEDEMA PERIPHERAL [None]
  - GASTROOESOPHAGEAL REFLUX DISEASE [None]
  - VOMITING [None]
  - INFLUENZA LIKE ILLNESS [None]
  - GINGIVAL DISORDER [None]
  - HEPATIC STEATOSIS [None]
  - NAUSEA [None]
  - WEIGHT INCREASED [None]
  - INJECTION SITE PRURITUS [None]
  - ANAEMIA POSTOPERATIVE [None]
  - DIARRHOEA [None]
  - SNEEZING [None]
  - BACK PAIN [None]
  - BLOOD ALKALINE PHOSPHATASE INCREASED [None]
  - ASPARTATE AMINOTRANSFERASE INCREASED [None]
